FAERS Safety Report 4994402-2 (Version None)
Quarter: 2006Q2

REPORT INFORMATION
  Report Type: 
  Country: None (occurrence: None)
  Receive Date: 20060503
  Receipt Date: 20060420
  Transmission Date: 20061013
  Serious: Yes (Other)
  Sender: FDA-Public Use
  Company Number: 2006056017

PATIENT
  Sex: Male

DRUGS (1)
  1. SUTENT [Suspect]
     Indication: RENAL CELL CARCINOMA STAGE UNSPECIFIED

REACTIONS (12)
  - ADRENAL DISORDER [None]
  - BACK PAIN [None]
  - DIARRHOEA [None]
  - DIFFICULTY IN WALKING [None]
  - DYSGEUSIA [None]
  - DYSPNOEA [None]
  - HAEMORRHAGE [None]
  - INSOMNIA [None]
  - PAIN IN EXTREMITY [None]
  - RENAL IMPAIRMENT [None]
  - WEIGHT DECREASED [None]
  - YELLOW SKIN [None]
